FAERS Safety Report 9119980 (Version 1)
Quarter: 2013Q1

REPORT INFORMATION
  Report Type: Report from Study
  Country: US (occurrence: US)
  Receive Date: 20130226
  Receipt Date: 20130226
  Transmission Date: 20140127
  Serious: Yes (Disabling)
  Sender: FDA-Public Use
  Company Number: US-BAYER-2013-021642

PATIENT
  Age: 60 Year
  Sex: Female

DRUGS (1)
  1. NEXAVAR [Suspect]
     Indication: HEPATIC CANCER
     Dosage: 3 TABLETS DAILY
     Route: 048
     Dates: start: 20121122

REACTIONS (8)
  - Muscular weakness [Not Recovered/Not Resolved]
  - Walking aid user [Not Recovered/Not Resolved]
  - Fatigue [Not Recovered/Not Resolved]
  - Walking aid user [Not Recovered/Not Resolved]
  - Dizziness [None]
  - Neuralgia [Not Recovered/Not Resolved]
  - Hyperkeratosis [Not Recovered/Not Resolved]
  - Alopecia [Not Recovered/Not Resolved]
